FAERS Safety Report 25343494 (Version 1)
Quarter: 2025Q2

REPORT INFORMATION
  Report Type: Spontaneous
  Country: US (occurrence: US)
  Receive Date: 20250521
  Receipt Date: 20250521
  Transmission Date: 20250716
  Serious: No
  Sender: BAUSCH AND LOMB
  Company Number: US-BAUSCH-BL-2025-006448

PATIENT
  Age: 54 Year
  Sex: Female
  Weight: 52.21 kg

DRUGS (2)
  1. XIFAXAN [Suspect]
     Active Substance: RIFAXIMIN
     Indication: Gastrointestinal microorganism overgrowth
     Route: 048
     Dates: start: 2021, end: 2021
  2. XIFAXAN [Suspect]
     Active Substance: RIFAXIMIN
     Indication: Product use in unapproved indication

REACTIONS (2)
  - Rash [Recovered/Resolved]
  - Product use in unapproved indication [Unknown]

NARRATIVE: CASE EVENT DATE: 20210101
